FAERS Safety Report 25075618 (Version 1)
Quarter: 2025Q1

REPORT INFORMATION
  Report Type: Spontaneous
  Country: GE (occurrence: GE)
  Receive Date: 20250313
  Receipt Date: 20250313
  Transmission Date: 20250409
  Serious: Yes (Hospitalization, Other)
  Sender: MARKSANS PHARMA LIMITED
  Company Number: GA-MARKSANS PHARMA LIMITED-MPL202500021

PATIENT

DRUGS (1)
  1. ESOMEPRAZOLE MAGNESIUM [Suspect]
     Active Substance: ESOMEPRAZOLE MAGNESIUM
     Indication: Drug provocation test
     Route: 048

REACTIONS (2)
  - Cross sensitivity reaction [Unknown]
  - Anaphylactic reaction [Unknown]
